FAERS Safety Report 6186487-5 (Version None)
Quarter: 2009Q2

REPORT INFORMATION
  Report Type: 
  Country: None (occurrence: None)
  Receive Date: 20090512
  Receipt Date: 20090430
  Transmission Date: 20091009
  Serious: Yes (Other)
  Sender: FDA-Public Use
  Company Number: US-JNJFOC-20090500580

PATIENT
  Sex: Female

DRUGS (4)
  1. TYLENOL [Suspect]
     Indication: URINARY TRACT INFECTION
  2. TYLENOL [Suspect]
     Indication: NASOPHARYNGITIS
  3. NITROFURANTOIN [Suspect]
     Indication: URINARY TRACT INFECTION
  4. UNSPECIFIED STUDY DRUG [Suspect]
     Indication: DRUG USE FOR UNKNOWN INDICATION

REACTIONS (2)
  - ABORTION SPONTANEOUS [None]
  - DRUG EXPOSURE DURING PREGNANCY [None]
